FAERS Safety Report 20258422 (Version 1)
Quarter: 2021Q4

REPORT INFORMATION
  Report Type: Spontaneous
  Country: US (occurrence: None)
  Receive Date: 20211229
  Receipt Date: 20211229
  Transmission Date: 20220304
  Serious: Yes (Hospitalization)
  Sender: FDA-Public Use
  Company Number: None

PATIENT
  Sex: Male

DRUGS (3)
  1. TECFIDERA [Suspect]
     Active Substance: DIMETHYL FUMARATE
     Indication: Multiple sclerosis
     Dosage: FREQUENCY : TWICE A DAY;?
     Route: 048
     Dates: start: 202011
  2. UNSPECIFIED INGREDIENT [Concomitant]
     Active Substance: UNSPECIFIED INGREDIENT
  3. TRAMADO [Concomitant]

REACTIONS (2)
  - Urinary tract infection [None]
  - Cystitis [None]
